FAERS Safety Report 7315434-5 (Version None)
Quarter: 2011Q1

REPORT INFORMATION
  Report Type: 
  Country: None (occurrence: None)
  Receive Date: 20110225
  Receipt Date: 20110221
  Transmission Date: 20110831
  Serious: Yes (Other)
  Sender: FDA-Public Use
  Company Number: B0701799A

PATIENT
  Age: 7 Year
  Sex: Male

DRUGS (1)
  1. LAMICTAL [Suspect]
     Indication: GRAND MAL CONVULSION
     Route: 048

REACTIONS (1)
  - MELAENA [None]
